FAERS Safety Report 23541426 (Version 1)
Quarter: 2024Q1

REPORT INFORMATION
  Report Type: Spontaneous
  Country: US (occurrence: US)
  Receive Date: 20240219
  Receipt Date: 20240219
  Transmission Date: 20240409
  Serious: No
  Sender: FDA-Public Use
  Company Number: US-ABBVIE-5641019

PATIENT
  Sex: Male

DRUGS (1)
  1. RINVOQ [Suspect]
     Active Substance: UPADACITINIB
     Indication: Crohn^s disease
     Route: 048

REACTIONS (5)
  - Inflammatory marker increased [Unknown]
  - Abdominal pain upper [Recovering/Resolving]
  - Appetite disorder [Recovering/Resolving]
  - Unevaluable event [Unknown]
  - Semen discolouration [Unknown]
